FAERS Safety Report 21118615 (Version 2)
Quarter: 2022Q3

REPORT INFORMATION
  Report Type: Spontaneous
  Country: GB (occurrence: GB)
  Receive Date: 20220722
  Receipt Date: 20220804
  Transmission Date: 20221027
  Serious: Yes (Hospitalization, Other)
  Sender: FDA-Public Use
  Company Number: GB-JNJFOC-20220562205

PATIENT
  Age: 83 Year
  Sex: Male

DRUGS (3)
  1. ABIRATERONE [Suspect]
     Active Substance: ABIRATERONE
     Indication: Prostate cancer
     Dosage: 1000 MILLIGRAM, 1 DOSE
     Route: 048
     Dates: start: 20220518
  2. PREDNISOLONE [Concomitant]
     Active Substance: PREDNISOLONE
     Indication: Steroid therapy
     Dosage: 0.5 UNITS DAILY
     Route: 048
     Dates: start: 20220518
  3. DEXAMETHASONE [Concomitant]
     Active Substance: DEXAMETHASONE
     Indication: Product used for unknown indication
     Dosage: 6 MILLIGRAM, DAILY
     Route: 065
     Dates: start: 20220706

REACTIONS (6)
  - Lower respiratory tract infection [Not Recovered/Not Resolved]
  - Rib fracture [Not Recovered/Not Resolved]
  - White blood cell count increased [Unknown]
  - Contusion [Unknown]
  - Product dose omission issue [Unknown]
  - Hypertension [Unknown]

NARRATIVE: CASE EVENT DATE: 20220526
